FAERS Safety Report 4360341-3 (Version None)
Quarter: 2004Q2

REPORT INFORMATION
  Report Type: 
  Country: None (occurrence: None)
  Receive Date: 20040514
  Receipt Date: 20040510
  Transmission Date: 20050107
  Serious: Yes (Death)
  Sender: FDA-Public Use
  Company Number: NSADSS2002039613

PATIENT
  Age: 44 Year
  Sex: Female

DRUGS (4)
  1. RISPERDAL [Suspect]
     Indication: BIPOLAR DISORDER
     Dosage: 3 MG, 1 IN 1 DAY, ORAL
     Route: 048
     Dates: start: 19980101, end: 20021101
  2. LITHIUM (LITHIUM) [Concomitant]
  3. CLONOPIN (CLONAZEPAM) [Concomitant]
  4. LEVOXYL [Concomitant]

REACTIONS (8)
  - DEAFNESS [None]
  - FATIGUE [None]
  - HYPERPROLACTINAEMIA [None]
  - HYPOTHERMIA [None]
  - MENORRHAGIA [None]
  - OVARIAN CYST [None]
  - VAGINAL HAEMORRHAGE [None]
  - WEIGHT INCREASED [None]
